FAERS Safety Report 6737819-8 (Version None)
Quarter: 2010Q2

REPORT INFORMATION
  Report Type: 
  Country: None (occurrence: None)
  Receive Date: 20100524
  Receipt Date: 20100520
  Transmission Date: 20101027
  Serious: Yes (Death)
  Sender: FDA-Public Use
  Company Number: US-TEVA-235307USA

PATIENT
  Sex: Female

DRUGS (1)
  1. GABAPENTIN [Suspect]
     Indication: BACK PAIN

REACTIONS (3)
  - BACK PAIN [None]
  - COMPLETED SUICIDE [None]
  - DRUG INEFFECTIVE [None]
